FAERS Safety Report 5952227-5 (Version None)
Quarter: 2008Q4

REPORT INFORMATION
  Report Type: 
  Country: None (occurrence: None)
  Receive Date: 20081113
  Receipt Date: 20081104
  Transmission Date: 20090506
  Serious: Yes (Hospitalization)
  Sender: FDA-Public Use
  Company Number: AT-ELI_LILLY_AND_COMPANY-AT200808005649

PATIENT
  Age: 47 Year
  Sex: Female
  Weight: 50 kg

DRUGS (4)
  1. ZYPREXA [Suspect]
     Indication: SCHIZOPHRENIA
     Dosage: 20 MG, DAILY (1/D)
     Dates: start: 20080807, end: 20080810
  2. TEMESTA [Concomitant]
     Indication: RESTLESSNESS
     Dosage: 1.25 UNK, 4/D
     Dates: start: 20080807, end: 20080819
  3. TEMESTA [Concomitant]
     Dosage: 1 D/F, DAILY (1/D)
     Dates: start: 20080820, end: 20080101
  4. TEMESTA [Concomitant]
     Dosage: UNK, UNKNOWN
     Dates: start: 20080101, end: 20080909

REACTIONS (2)
  - ACUTE PSYCHOSIS [None]
  - PANCREATIC ENZYMES INCREASED [None]
